FAERS Safety Report 6230832-9 (Version None)
Quarter: 2009Q2

REPORT INFORMATION
  Report Type: 
  Country: None (occurrence: None)
  Receive Date: 20090616
  Receipt Date: 20090608
  Transmission Date: 20091009
  Serious: Yes (Other)
  Sender: FDA-Public Use
  Company Number: US-JNJFOC-20090603404

PATIENT
  Age: 59 Year
  Sex: Female
  Weight: 56.25 kg

DRUGS (7)
  1. IMODIUM A-D [Suspect]
     Route: 048
  2. IMODIUM A-D [Suspect]
     Indication: DIVERTICULUM
     Route: 048
  3. ASPIRIN [Concomitant]
     Indication: ANTICOAGULANT THERAPY
  4. DIOVAN [Concomitant]
     Indication: HYPERTENSION
  5. CITRUCEL [Concomitant]
     Indication: MEDICAL DIET
     Dosage: 1 PACK DAILY
  6. LOVASTATIN [Concomitant]
     Indication: BLOOD CHOLESTEROL INCREASED
  7. THEOPHYLLINE [Concomitant]
     Indication: ASTHMA

REACTIONS (1)
  - HAEMORRHAGE [None]
